FAERS Safety Report 6800050-1 (Version None)
Quarter: 2010Q2

REPORT INFORMATION
  Report Type: 
  Country: None (occurrence: None)
  Receive Date: 20100617
  Receipt Date: 20100614
  Transmission Date: 20101027
  Serious: Yes (Death, Hospitalization)
  Sender: FDA-Public Use
  Company Number: 2010SP029022

PATIENT
  Age: 65 Year
  Sex: Female

DRUGS (2)
  1. VIRAFERONPEG [Suspect]
     Indication: HEPATITIS C
     Dosage: 80 MCG;
  2. REBETOL [Suspect]
     Indication: HEPATITIS C

REACTIONS (2)
  - CHOLELITHIASIS [None]
  - MULTI-ORGAN FAILURE [None]
